FAERS Safety Report 17054212 (Version 1)
Quarter: 2019Q4

REPORT INFORMATION
  Report Type: Spontaneous
  Country: US (occurrence: US)
  Receive Date: 20191120
  Receipt Date: 20191120
  Transmission Date: 20200122
  Serious: No
  Sender: FDA-Public Use
  Company Number: US-ASTRAZENECA-2019SF52399

PATIENT
  Sex: Female
  Weight: 104.3 kg

DRUGS (2)
  1. HUMALOG [Concomitant]
     Active Substance: INSULIN LISPRO
  2. BYDUREON BCISE [Suspect]
     Active Substance: EXENATIDE
     Indication: DIABETES MELLITUS
     Dosage: 2MG,4 COUNT, ONCE A WEEK
     Route: 065

REACTIONS (10)
  - Pain [Not Recovered/Not Resolved]
  - Faeces discoloured [Not Recovered/Not Resolved]
  - Pain in extremity [Not Recovered/Not Resolved]
  - Eye pain [Not Recovered/Not Resolved]
  - Gastrointestinal disorder [Not Recovered/Not Resolved]
  - Nausea [Not Recovered/Not Resolved]
  - Abdominal pain lower [Not Recovered/Not Resolved]
  - Diverticulum [Not Recovered/Not Resolved]
  - Diarrhoea [Not Recovered/Not Resolved]
  - Headache [Not Recovered/Not Resolved]
